FAERS Safety Report 8298029-9 (Version None)
Quarter: 2012Q2

REPORT INFORMATION
  Report Type: 
  Country: None (occurrence: None)
  Receive Date: 20120419
  Receipt Date: 20100723
  Transmission Date: 20120825
  Serious: Yes (Hospitalization, Other)
  Sender: FDA-Public Use
  Company Number: US-BAYER-201014076NA

PATIENT
  Age: 35 Year
  Sex: Female
  Weight: 136 kg

DRUGS (2)
  1. YASMIN [Suspect]
     Indication: MENSTRUAL CYCLE MANAGEMENT
     Route: 048
     Dates: start: 20031102, end: 20041201
  2. CARBATROL [Concomitant]
     Indication: CONVULSION
     Dosage: 1000 MG, QD
     Dates: start: 20020101, end: 20090101

REACTIONS (5)
  - THROMBOSIS [None]
  - PAIN IN EXTREMITY [None]
  - OEDEMA PERIPHERAL [None]
  - DEEP VEIN THROMBOSIS [None]
  - GAIT DISTURBANCE [None]
